FAERS Safety Report 16140442 (Version 1)
Quarter: 2019Q2

REPORT INFORMATION
  Report Type: Spontaneous
  Country: US (occurrence: US)
  Receive Date: 20190329
  Receipt Date: 20190329
  Transmission Date: 20190711
  Serious: Yes (Disabling, Other)
  Sender: FDA-Public Use
  Company Number: None

PATIENT
  Age: 47 Year
  Sex: Female
  Weight: 58.5 kg

DRUGS (1)
  1. LARIAM [Suspect]
     Active Substance: MEFLOQUINE HYDROCHLORIDE
     Indication: MALARIA PROPHYLAXIS
     Dosage: ?          OTHER FREQUENCY:WEEKLY;?
     Route: 048
     Dates: start: 19950401, end: 19960115

REACTIONS (13)
  - Psychotic disorder [None]
  - Cognitive disorder [None]
  - Generalised anxiety disorder [None]
  - Tinnitus [None]
  - Vestibular disorder [None]
  - Binocular eye movement disorder [None]
  - Brain stem syndrome [None]
  - Major depression [None]
  - Vertigo [None]
  - Bipolar II disorder [None]
  - Balance disorder [None]
  - Post-traumatic stress disorder [None]
  - Memory impairment [None]

NARRATIVE: CASE EVENT DATE: 19950401
